FAERS Safety Report 5967514-4 (Version None)
Quarter: 2008Q4

REPORT INFORMATION
  Report Type: 
  Country: None (occurrence: None)
  Receive Date: 20081125
  Receipt Date: 20081113
  Transmission Date: 20090506
  Serious: Yes (Death)
  Sender: FDA-Public Use
  Company Number: JP-PFIZER INC-2008096365

PATIENT
  Sex: Female

DRUGS (8)
  1. IRINOTECAN HCL [Suspect]
     Indication: COLON CANCER
     Route: 042
     Dates: start: 20080904, end: 20080904
  2. TEGAFUR/GIMERACIL/OTERACIL POTASSIUM [Concomitant]
     Route: 048
     Dates: start: 20080904
  3. HYPEN [Concomitant]
     Route: 048
     Dates: start: 20080615, end: 20080616
  4. ALOSENN [Concomitant]
     Route: 048
     Dates: start: 20080626, end: 20080906
  5. DAIKENTYUTO [Concomitant]
     Route: 048
     Dates: start: 20080626, end: 20080906
  6. LAC B [Concomitant]
     Route: 048
     Dates: start: 20080804, end: 20080916
  7. LOPEMIN [Concomitant]
     Route: 048
     Dates: start: 20080101
  8. LOPEMIN [Concomitant]
     Route: 048
     Dates: start: 20080916

REACTIONS (2)
  - DIARRHOEA [None]
  - NEUTROPENIA [None]
